FAERS Safety Report 10559628 (Version 2)
Quarter: 2014Q4

REPORT INFORMATION
  Report Type: Spontaneous
  Country: HU (occurrence: HU)
  Receive Date: 20141103
  Receipt Date: 20141128
  Transmission Date: 20150529
  Serious: Yes (Death, Other)
  Sender: FDA-Public Use
  Company Number: HU-ROCHE-1483329

PATIENT
  Age: 50 Year
  Sex: Female

DRUGS (11)
  1. KALDYUM [Concomitant]
     Active Substance: POTASSIUM CHLORIDE
     Route: 048
  2. NOLICIN [Concomitant]
     Route: 065
  3. GLYCERIN. [Concomitant]
     Active Substance: GLYCERIN
  4. DITROPAN [Concomitant]
     Active Substance: OXYBUTYNIN CHLORIDE
     Route: 065
  5. FUROSEMID [Concomitant]
     Active Substance: FUROSEMIDE
     Route: 048
  6. MEDROL [Concomitant]
     Active Substance: METHYLPREDNISOLONE
     Route: 065
  7. NOLPAZA [Concomitant]
     Active Substance: PANTOPRAZOLE SODIUM
     Route: 065
  8. RYTMONORM [Concomitant]
     Active Substance: PROPAFENONE
     Route: 065
  9. AKTIFERRIN (HUNGARY) [Concomitant]
     Route: 065
  10. REASEC [Concomitant]
  11. ZELBORAF [Suspect]
     Active Substance: VEMURAFENIB
     Indication: METASTATIC MALIGNANT MELANOMA
     Route: 048
     Dates: start: 20121121, end: 20130606

REACTIONS (6)
  - Electrocardiogram QT prolonged [Unknown]
  - Hyperkeratosis [Unknown]
  - Arthralgia [Unknown]
  - Disease progression [Fatal]
  - Photosensitivity reaction [Unknown]
  - Diarrhoea [Unknown]

NARRATIVE: CASE EVENT DATE: 20130606
